FAERS Safety Report 5271869-6 (Version None)
Quarter: 2007Q1

REPORT INFORMATION
  Report Type: 
  Country: None (occurrence: None)
  Receive Date: 20070316
  Receipt Date: 20070305
  Transmission Date: 20070707
  Serious: Yes (Other)
  Sender: FDA-Public Use
  Company Number: GXKR2007GB02273

PATIENT
  Age: 64 Year
  Sex: Female
  Weight: 100 kg

DRUGS (14)
  1. SIMVASTATIN [Suspect]
     Dosage: ORAL
     Route: 048
     Dates: start: 20040101, end: 20070207
  2. WARFARIN SODIUM [Suspect]
     Indication: ATRIAL FIBRILLATION
     Dosage: 7 MG, QD
  3. FLUTICASONE PROPIONATE [Concomitant]
  4. FUROSEMIDE [Concomitant]
  5. IPRATROPIUM BROMIDE [Concomitant]
  6. LOSARTAN POTASSIUM [Concomitant]
  7. METFORMIN HCL [Concomitant]
  8. MONTELUKAST (MONETLUKAST) [Concomitant]
  9. NICORANDIL (NICORANDIL) [Concomitant]
  10. ORLISTAT [Concomitant]
  11. SALMETEROL (SALMETEROL) [Concomitant]
  12. SPIRONOLACTONE [Concomitant]
  13. TRAMADOL HCL [Concomitant]
  14. VERAPAMIL [Concomitant]

REACTIONS (3)
  - DRUG INTERACTION [None]
  - INTERNATIONAL NORMALISED RATIO INCREASED [None]
  - MYOSITIS [None]
